FAERS Safety Report 5400811-X (Version None)
Quarter: 2007Q3

REPORT INFORMATION
  Report Type: 
  Country: None (occurrence: None)
  Receive Date: 20070725
  Receipt Date: 20070713
  Transmission Date: 20080115
  Serious: Yes (Hospitalization)
  Sender: FDA-Public Use
  Company Number: TPA2007A01240

PATIENT
  Age: 7 Decade
  Sex: Female

DRUGS (3)
  1. ACTOS [Suspect]
     Indication: TYPE 2 DIABETES MELLITUS
     Dosage: PER ORAL
     Route: 048
  2. AVANDIA [Suspect]
     Indication: TYPE 2 DIABETES MELLITUS
     Dosage: 1 TAB., 1 IN 1 D, PER ORAL
     Route: 048
  3. SITAGLIPTIN PHOSPHATE (ANTI-DIABETICS) [Concomitant]

REACTIONS (3)
  - AMNESIA [None]
  - CARDIAC FAILURE [None]
  - MYOCARDIAL INFARCTION [None]
